FAERS Safety Report 18672237 (Version 3)
Quarter: 2021Q1

REPORT INFORMATION
  Report Type: Spontaneous
  Country: US (occurrence: US)
  Receive Date: 20201229
  Receipt Date: 20210223
  Transmission Date: 20210419
  Serious: No
  Sender: FDA-Public Use
  Company Number: US-CELGENEUS-USA-20201205229

PATIENT
  Age: 74 Year
  Sex: Female
  Weight: 59.02 kg

DRUGS (3)
  1. POMALYST [Suspect]
     Active Substance: POMALIDOMIDE
     Dosage: 4 MILLIGRAM
     Route: 048
     Dates: start: 202007
  2. POMALYST [Suspect]
     Active Substance: POMALIDOMIDE
     Indication: PLASMA CELL MYELOMA
     Dosage: 2?3 MG
     Route: 048
     Dates: start: 202005
  3. POMALYST [Suspect]
     Active Substance: POMALIDOMIDE
     Indication: MASTITIS
     Dosage: 1 MILLIGRAM
     Route: 048
     Dates: start: 20200318

REACTIONS (4)
  - Tremor [Not Recovered/Not Resolved]
  - Weight decreased [Unknown]
  - Product dose omission issue [Unknown]
  - Tumour marker increased [Not Recovered/Not Resolved]

NARRATIVE: CASE EVENT DATE: 2020
